FAERS Safety Report 5001345-7 (Version None)
Quarter: 2006Q2

REPORT INFORMATION
  Report Type: 
  Country: None (occurrence: None)
  Receive Date: 20060512
  Receipt Date: 20060117
  Transmission Date: 20061013
  Serious: Yes (Death, Hospitalization, Disabling, Other)
  Sender: FDA-Public Use
  Company Number: US-MERCK-0601USA02203

PATIENT
  Age: 50 Year
  Sex: Male
  Weight: 73 kg

DRUGS (1)
  1. VIOXX [Suspect]
     Indication: ARTHRITIS
     Route: 048
     Dates: start: 20000101, end: 20021201

REACTIONS (12)
  - BLOOD CHOLESTEROL INCREASED [None]
  - CEREBROVASCULAR ACCIDENT [None]
  - FACIAL BONES FRACTURE [None]
  - FALL [None]
  - GOITRE [None]
  - HEADACHE [None]
  - HEMIPARESIS [None]
  - HYPERTENSION [None]
  - NERVOUS SYSTEM DISORDER [None]
  - PROGRESSIVE SUPRANUCLEAR PALSY [None]
  - QUADRIPARESIS [None]
  - SPINAL OSTEOARTHRITIS [None]
